FAERS Safety Report 19931591 (Version 2)
Quarter: 2021Q4

REPORT INFORMATION
  Report Type: Spontaneous
  Country: AU (occurrence: AU)
  Receive Date: 20211008
  Receipt Date: 20211207
  Transmission Date: 20220303
  Serious: Yes (Other)
  Sender: FDA-Public Use
  Company Number: AU-BIOGEN-2021BI01055845

PATIENT
  Age: 46 Year
  Sex: Female

DRUGS (2)
  1. TYSABRI [Suspect]
     Active Substance: NATALIZUMAB
     Indication: Multiple sclerosis
     Route: 065
     Dates: start: 200806
  2. ASTRA-ZENECA VACCINE [Concomitant]
     Indication: COVID-19 prophylaxis
     Route: 065
     Dates: start: 202104

REACTIONS (5)
  - Chronic lymphocytic leukaemia [Unknown]
  - Varicella [Unknown]
  - Herpes zoster [Unknown]
  - Herpes zoster reactivation [Unknown]
  - Arthralgia [Unknown]

NARRATIVE: CASE EVENT DATE: 20110901
